FAERS Safety Report 7964842-8 (Version None)
Quarter: 2011Q4

REPORT INFORMATION
  Report Type: 
  Country: None (occurrence: None)
  Receive Date: 20111208
  Receipt Date: 20111130
  Transmission Date: 20120403
  Serious: Yes (Other)
  Sender: FDA-Public Use
  Company Number: PHHY2011IT105504

PATIENT
  Sex: Female

DRUGS (2)
  1. TASIGNA [Suspect]
     Indication: CHRONIC MYELOID LEUKAEMIA
     Dosage: UNK UKN, UNK
     Route: 048
     Dates: start: 20110501
  2. TASIGNA [Suspect]
     Dosage: 200 MG DAILY
     Route: 048

REACTIONS (2)
  - AMNESTIC DISORDER [None]
  - COGNITIVE DISORDER [None]
